FAERS Safety Report 11928837 (Version 2)
Quarter: 2016Q1

REPORT INFORMATION
  Report Type: Spontaneous
  Country: AT (occurrence: AT)
  Receive Date: 20160119
  Receipt Date: 20160301
  Transmission Date: 20160526
  Serious: Yes (Death, Life-Threatening, Disabling, Other)
  Sender: FDA-Public Use
  Company Number: AT-009507513-1601AUT004666

PATIENT
  Age: 50 Year
  Sex: Male
  Weight: 70 kg

DRUGS (3)
  1. ENDOXAN [Concomitant]
     Active Substance: CYCLOPHOSPHAMIDE
     Dosage: UNK
     Dates: start: 20120105, end: 20120108
  2. FLUDARABINE PHOSPHATE. [Concomitant]
     Active Substance: FLUDARABINE PHOSPHATE
     Dosage: UNK
     Dates: start: 20120105, end: 20120108
  3. NOXAFIL [Suspect]
     Active Substance: POSACONAZOLE
     Indication: ANTIFUNGAL PROPHYLAXIS
     Dosage: 600 MG (3X5ML) ,QD
     Route: 048

REACTIONS (2)
  - Drug ineffective [Unknown]
  - Cerebral aspergillosis [Fatal]

NARRATIVE: CASE EVENT DATE: 20120109
